FAERS Safety Report 25627614 (Version 1)
Quarter: 2025Q3

REPORT INFORMATION
  Report Type: Spontaneous
  Country: US (occurrence: None)
  Receive Date: 20250730
  Receipt Date: 20250730
  Transmission Date: 20251020
  Serious: Yes (unspecified)
  Sender: FDA-CTU
  Company Number: None

PATIENT
  Age: 74 Year
  Sex: Female
  Weight: 53.1 kg

DRUGS (11)
  1. NAMZARIC [Suspect]
     Active Substance: DONEPEZIL HYDROCHLORIDE\MEMANTINE HYDROCHLORIDE
     Indication: Dementia
     Dosage: 1 CAPSULE AT BEDTIME ORAL
     Route: 048
     Dates: start: 20250723, end: 20250726
  2. ENBREL [Concomitant]
     Active Substance: ETANERCEPT
  3. Valsartn [Concomitant]
  4. TOLTERODINE [Concomitant]
     Active Substance: TOLTERODINE
  5. Lexothyroxine [Concomitant]
  6. ATORVASTATIN [Concomitant]
     Active Substance: ATORVASTATIN
  7. VITAMIN D3 [Concomitant]
     Active Substance: CHOLECALCIFEROL
  8. OMEGA 3 [Concomitant]
     Active Substance: CAPSAICIN
  9. VITAMINS [Concomitant]
     Active Substance: VITAMINS
  10. PROBIOTICS NOS [Concomitant]
     Active Substance: PROBIOTICS NOS
  11. Lipo Flavonoid [Concomitant]

REACTIONS (7)
  - Dyspnoea [None]
  - Nausea [None]
  - Decreased appetite [None]
  - Insomnia [None]
  - Dizziness [None]
  - Lethargy [None]
  - Balance disorder [None]

NARRATIVE: CASE EVENT DATE: 20250724
